FAERS Safety Report 11423310 (Version 1)
Quarter: 2015Q3

REPORT INFORMATION
  Report Type: Spontaneous
  Country: US (occurrence: US)
  Receive Date: 20150827
  Receipt Date: 20150827
  Transmission Date: 20151125
  Serious: Yes (Hospitalization)
  Sender: FDA-Public Use
  Company Number: US-GUERBET LLC-1041419

PATIENT
  Age: 48 Year
  Sex: Female
  Weight: 120 kg

DRUGS (1)
  1. OXILAN [Suspect]
     Active Substance: IOXILAN
     Indication: CATHETERISATION CARDIAC

REACTIONS (2)
  - Pruritus [Recovered/Resolved]
  - Urticaria [Recovered/Resolved]
